FAERS Safety Report 15178125 (Version 7)
Quarter: 2023Q4

REPORT INFORMATION
  Report Type: Report from Study
  Country: DE (occurrence: DE)
  Receive Date: 20180721
  Receipt Date: 20231226
  Transmission Date: 20240110
  Serious: Yes (Death, Disabling, Congenital Anomaly, Other)
  Sender: FDA-Public Use
  Company Number: DE-AUROBINDO-AUR-APL-2018-036863

PATIENT
  Weight: 0.056 kg

DRUGS (24)
  1. ASPIRIN [Suspect]
     Active Substance: ASPIRIN
     Indication: Embolism venous
     Dosage: 100 MILLIGRAM, ONCE A DAY
     Route: 064
     Dates: start: 20111214, end: 20120320
  2. ASPIRIN [Suspect]
     Active Substance: ASPIRIN
     Indication: Systemic lupus erythematosus
  3. RAMIPRIL [Suspect]
     Active Substance: RAMIPRIL
     Indication: Hypertension
     Dosage: 20 MILLIGRAM (EXPOSURE DURATION: 0-13+6 WEEKS)
     Route: 064
  4. SIMVASTATIN [Suspect]
     Active Substance: SIMVASTATIN
     Indication: Product used for unknown indication
     Dosage: UNK
     Route: 064
  5. ASPIRIN [Suspect]
     Active Substance: ASPIRIN
     Indication: Product used for unknown indication
     Dosage: UNK
     Route: 064
  6. PANTOPRAZOLE [Suspect]
     Active Substance: PANTOPRAZOLE
     Indication: Product used for unknown indication
     Dosage: UNK
     Route: 064
  7. EZETIMIBE [Suspect]
     Active Substance: EZETIMIBE
     Indication: Product used for unknown indication
     Dosage: UNK
     Route: 064
  8. RIVAROXABAN [Suspect]
     Active Substance: RIVAROXABAN
     Indication: Product used for unknown indication
     Dosage: UNK
     Route: 064
  9. ALISKIREN [Suspect]
     Active Substance: ALISKIREN
     Indication: Product used for unknown indication
     Dosage: UNK
     Route: 064
  10. NICOTINE [Suspect]
     Active Substance: NICOTINE
     Indication: Product used for unknown indication
     Dosage: UNK
     Route: 064
  11. METAMIZOLE [Suspect]
     Active Substance: METAMIZOLE
     Indication: Product used for unknown indication
     Dosage: UNK
     Route: 064
  12. PREDNISOLONE [Suspect]
     Active Substance: PREDNISOLONE
     Indication: Product used for unknown indication
     Dosage: UNK
     Route: 064
  13. HYDROXYCHLOROQUINE [Suspect]
     Active Substance: HYDROXYCHLOROQUINE
     Indication: Product used for unknown indication
     Dosage: UNK
     Route: 064
  14. ALBUTEROL [Suspect]
     Active Substance: ALBUTEROL
     Indication: Product used for unknown indication
     Dosage: UNK
     Route: 064
  15. TORSEMIDE [Suspect]
     Active Substance: TORSEMIDE
     Indication: Product used for unknown indication
     Dosage: UNK
     Route: 064
  16. DALTEPARIN SODIUM [Suspect]
     Active Substance: DALTEPARIN SODIUM
     Indication: Product used for unknown indication
     Route: 065
  17. RITUXIMAB [Suspect]
     Active Substance: RITUXIMAB
     Indication: Product used for unknown indication
     Route: 065
  18. TACROLIMUS [Suspect]
     Active Substance: TACROLIMUS
     Indication: Product used for unknown indication
     Dosage: UNK
     Route: 064
  19. XARELTO [Suspect]
     Active Substance: RIVAROXABAN
     Indication: Product used for unknown indication
     Dosage: UNK FROM GESTATIONAL WEEK 0-5
     Route: 064
  20. METAMIZOLE [Suspect]
     Active Substance: METAMIZOLE
     Indication: Product used for unknown indication
     Dosage: UNK
     Route: 064
  21. CYTOTEC [Suspect]
     Active Substance: MISOPROSTOL
     Indication: Abortion induced
     Dosage: UNK 13.6 GESTATIONAL WEEK
     Route: 064
     Dates: start: 20120320
  22. CYCLOPHOSPHAMIDE [Suspect]
     Active Substance: CYCLOPHOSPHAMIDE
     Indication: Systemic lupus erythematosus
     Dosage: 300 (MG CUMULATIVE) PRECONCEPTIONAL
     Route: 064
  23. ENOXAPARIN [Concomitant]
     Active Substance: ENOXAPARIN
     Indication: Product used for unknown indication
     Dosage: EXPOSURE DURATION: 0-14 WEEKS
     Route: 064
  24. MIFEPRISTONE [Concomitant]
     Active Substance: MIFEPRISTONE
     Indication: Abortion induced
     Dosage: UNK 13.6 GESTATIONAL WEEK
     Dates: start: 20120320

REACTIONS (10)
  - Death [Fatal]
  - Abortion induced [Fatal]
  - Ventricular septal defect [Fatal]
  - Truncus arteriosus persistent [Fatal]
  - Foetal exposure during pregnancy [Fatal]
  - Premature baby [Fatal]
  - Low birth weight baby [Fatal]
  - Heart disease congenital [Fatal]
  - Cardiac septal defect [Fatal]
  - Congenital cardiovascular anomaly [Fatal]
